FAERS Safety Report 23819449 (Version 8)
Quarter: 2024Q3

REPORT INFORMATION
  Report Type: Spontaneous
  Country: CA (occurrence: CA)
  Receive Date: 20240506
  Receipt Date: 20240912
  Transmission Date: 20241016
  Serious: Yes (Hospitalization, Other)
  Sender: CELLTRION
  Company Number: CA-CELLTRION INC.-2024CA010219

PATIENT

DRUGS (3)
  1. INFLECTRA [Suspect]
     Active Substance: INFLIXIMAB-DYYB
     Indication: Crohn^s disease
     Dosage: 318 MG, AT WEEK Q 0, 2 AND 6 THEN EVERY 8 WEEKS
     Route: 042
     Dates: start: 20240408
  2. INFLECTRA [Suspect]
     Active Substance: INFLIXIMAB-DYYB
     Dosage: 318 MG, AFTER 5 WEEKS AND 1 DAY (PRESCRIBED FOR WEEK 2 INDUCTION DOSE)
     Route: 042
     Dates: start: 20240514
  3. INFLECTRA [Suspect]
     Active Substance: INFLIXIMAB-DYYB
     Dosage: 370MG AFTER 3 WEEKS AND 6 DAYS (WEEK 6) (PRESCRIBED WAS 318 MG, AT WEEK 0, 2 AND 6 THEN Q 8 WEEKS)
     Route: 042
     Dates: start: 20240610

REACTIONS (11)
  - Vomiting [Unknown]
  - Illness [Unknown]
  - Shock [Unknown]
  - Condition aggravated [Not Recovered/Not Resolved]
  - Arthralgia [Recovered/Resolved]
  - Weight decreased [Not Recovered/Not Resolved]
  - Incorrect dose administered [Unknown]
  - Off label use [Unknown]
  - Pallor [Not Recovered/Not Resolved]
  - Tachycardia [Not Recovered/Not Resolved]
  - Nausea [Recovered/Resolved]

NARRATIVE: CASE EVENT DATE: 20240101
